FAERS Safety Report 21664676 (Version 24)
Quarter: 2025Q3

REPORT INFORMATION
  Report Type: Spontaneous
  Country: CA (occurrence: CA)
  Receive Date: 20221130
  Receipt Date: 20250912
  Transmission Date: 20251021
  Serious: Yes (Other)
  Sender: BAUSCH AND LOMB
  Company Number: CA-BAUSCH-BL-2020-022260

PATIENT
  Age: 41 Year
  Sex: Female

DRUGS (583)
  1. PREDNISOLONE [Suspect]
     Active Substance: PREDNISOLONE
     Indication: Product used for unknown indication
     Route: 065
  2. TRAMADOL HYDROCHLORIDE [Suspect]
     Active Substance: TRAMADOL HYDROCHLORIDE
     Indication: Product used for unknown indication
     Route: 065
  3. TRAMADOL HYDROCHLORIDE [Suspect]
     Active Substance: TRAMADOL HYDROCHLORIDE
     Route: 065
  4. TRAMADOL HYDROCHLORIDE [Suspect]
     Active Substance: TRAMADOL HYDROCHLORIDE
     Route: 065
  5. TRAMADOL HYDROCHLORIDE [Suspect]
     Active Substance: TRAMADOL HYDROCHLORIDE
     Route: 065
  6. ACETAMINOPHEN [Suspect]
     Active Substance: ACETAMINOPHEN
     Indication: Migraine
     Route: 065
  7. ACETAMINOPHEN [Suspect]
     Active Substance: ACETAMINOPHEN
     Route: 065
  8. ACETAMINOPHEN [Suspect]
     Active Substance: ACETAMINOPHEN
     Route: 065
  9. AZITHROMYCIN [Suspect]
     Active Substance: AZITHROMYCIN
     Indication: Migraine
     Route: 065
  10. AZITHROMYCIN [Suspect]
     Active Substance: AZITHROMYCIN
     Indication: Product used for unknown indication
     Route: 065
  11. AZITHROMYCIN [Suspect]
     Active Substance: AZITHROMYCIN
     Route: 065
  12. AZITHROMYCIN [Suspect]
     Active Substance: AZITHROMYCIN
     Route: 065
  13. AZITHROMYCIN [Suspect]
     Active Substance: AZITHROMYCIN
     Route: 065
  14. AZITHROMYCIN [Suspect]
     Active Substance: AZITHROMYCIN
     Route: 065
  15. AZITHROMYCIN [Suspect]
     Active Substance: AZITHROMYCIN
     Route: 065
  16. AZITHROMYCIN [Suspect]
     Active Substance: AZITHROMYCIN
     Route: 065
  17. AZITHROMYCIN [Suspect]
     Active Substance: AZITHROMYCIN
     Route: 065
  18. AZITHROMYCIN [Suspect]
     Active Substance: AZITHROMYCIN
     Route: 065
  19. AZITHROMYCIN [Suspect]
     Active Substance: AZITHROMYCIN
     Route: 065
  20. AZITHROMYCIN [Suspect]
     Active Substance: AZITHROMYCIN
     Route: 065
  21. AZITHROMYCIN [Suspect]
     Active Substance: AZITHROMYCIN
     Route: 065
  22. AZITHROMYCIN [Suspect]
     Active Substance: AZITHROMYCIN
     Route: 065
  23. AZITHROMYCIN [Suspect]
     Active Substance: AZITHROMYCIN
     Route: 065
  24. AZITHROMYCIN [Suspect]
     Active Substance: AZITHROMYCIN
     Route: 065
  25. AZITHROMYCIN [Suspect]
     Active Substance: AZITHROMYCIN
     Route: 065
  26. AZITHROMYCIN [Suspect]
     Active Substance: AZITHROMYCIN
     Route: 065
  27. AZITHROMYCIN [Suspect]
     Active Substance: AZITHROMYCIN
     Dosage: AZITHROMYCIN DIHYDRATE
     Route: 065
  28. AZITHROMYCIN [Suspect]
     Active Substance: AZITHROMYCIN
     Dosage: AZITHROMYCIN DIHYDRATE
     Route: 065
  29. CIPROFLOXACIN [Suspect]
     Active Substance: CIPROFLOXACIN
     Indication: Migraine
     Dosage: 2 EVERY 1 DAY
     Route: 065
  30. CIPROFLOXACIN [Suspect]
     Active Substance: CIPROFLOXACIN
     Route: 065
  31. CIPROFLOXACIN [Suspect]
     Active Substance: CIPROFLOXACIN
     Route: 065
  32. CIPROFLOXACIN [Suspect]
     Active Substance: CIPROFLOXACIN
     Route: 065
  33. CIPROFLOXACIN [Suspect]
     Active Substance: CIPROFLOXACIN
     Route: 065
  34. CIPROFLOXACIN [Suspect]
     Active Substance: CIPROFLOXACIN
     Dosage: CIPROFLOXACIN HYDROCHLORIDE
     Route: 065
  35. CIPROFLOXACIN [Suspect]
     Active Substance: CIPROFLOXACIN
     Route: 065
  36. CIPROFLOXACIN [Suspect]
     Active Substance: CIPROFLOXACIN
     Dosage: CIPROFLOXACIN HYDROCHLORIDE
     Route: 065
  37. CIPROFLOXACIN [Suspect]
     Active Substance: CIPROFLOXACIN
     Dosage: CIPROFLOXACIN HYDROCHLORIDE
     Route: 065
  38. CIPROFLOXACIN [Suspect]
     Active Substance: CIPROFLOXACIN
     Dosage: CIPROFLOXACIN HYDROCHLORIDE
     Route: 065
  39. CIPROFLOXACIN [Suspect]
     Active Substance: CIPROFLOXACIN
     Route: 065
  40. CIPROFLOXACIN [Suspect]
     Active Substance: CIPROFLOXACIN
     Dosage: CIPROFLOXACIN LACTATE
     Route: 065
  41. CIPROFLOXACIN [Suspect]
     Active Substance: CIPROFLOXACIN
     Dosage: CIPROFLOXACIN LACTATE
     Route: 065
  42. CIPROFLOXACIN [Suspect]
     Active Substance: CIPROFLOXACIN
     Dosage: CIPROFLOXACIN
     Route: 048
  43. CIPROFLOXACIN [Suspect]
     Active Substance: CIPROFLOXACIN
     Dosage: CIPROFLOXACIN
     Route: 065
  44. CIPROFLOXACIN [Suspect]
     Active Substance: CIPROFLOXACIN
     Dosage: CIPROFLOXACIN
     Route: 065
  45. CIPROFLOXACIN [Suspect]
     Active Substance: CIPROFLOXACIN
     Dosage: CIPROFLOXACIN HYDROCHLORIDE
     Route: 065
  46. CIPROFLOXACIN [Suspect]
     Active Substance: CIPROFLOXACIN
     Dosage: CIPROFLOXACIN HYDROCHLORIDE
     Route: 065
  47. CIPROFLOXACIN [Suspect]
     Active Substance: CIPROFLOXACIN
     Route: 065
  48. CIPROFLOXACIN [Suspect]
     Active Substance: CIPROFLOXACIN
     Route: 065
  49. CIPROFLOXACIN [Suspect]
     Active Substance: CIPROFLOXACIN
     Dosage: 1 DOSAGE FORMS,1 IN 1 D
     Route: 065
  50. CIPROFLOXACIN [Suspect]
     Active Substance: CIPROFLOXACIN
     Route: 065
  51. CIPROFLOXACIN [Suspect]
     Active Substance: CIPROFLOXACIN
     Route: 065
  52. CIPROFLOXACIN [Suspect]
     Active Substance: CIPROFLOXACIN
     Dosage: 1 DOSAGE FORMS,1 IN 12 HR
     Route: 065
  53. CIPROFLOXACIN [Suspect]
     Active Substance: CIPROFLOXACIN
     Dosage: 2 DOSAGE FORMS (1 DOSAGE FORMS,1 IN 12 HR)
     Route: 065
  54. CIPROFLOXACIN [Suspect]
     Active Substance: CIPROFLOXACIN
     Dosage: 2 DOSAGE FORMS (1 DOSAGE FORMS,1 IN 12 HR)
     Route: 065
  55. CIPROFLOXACIN [Suspect]
     Active Substance: CIPROFLOXACIN
     Route: 065
  56. CIPROFLOXACIN [Suspect]
     Active Substance: CIPROFLOXACIN
     Dosage: 1 DOSAGE FORMS,1 IN 1 D
     Route: 065
  57. CIPROFLOXACIN [Suspect]
     Active Substance: CIPROFLOXACIN
     Dosage: 1 DOSAGE FORMS,1 IN 12 HR
     Route: 065
  58. CIPROFLOXACIN [Suspect]
     Active Substance: CIPROFLOXACIN
     Dosage: 1 DOSAGE FORMS,1 IN 12 HR
     Route: 065
  59. CIPROFLOXACIN [Suspect]
     Active Substance: CIPROFLOXACIN
     Dosage: 2 DOSAGE FORMS,1 IN 12 HR
     Route: 065
  60. CIPROFLOXACIN [Suspect]
     Active Substance: CIPROFLOXACIN
     Dosage: 2 DOSAGE FORMS,1 IN 1 D
     Route: 065
  61. CIPROFLOXACIN [Suspect]
     Active Substance: CIPROFLOXACIN
     Route: 065
  62. CIPROFLOXACIN [Suspect]
     Active Substance: CIPROFLOXACIN
     Route: 065
  63. CIPROFLOXACIN [Suspect]
     Active Substance: CIPROFLOXACIN
     Dosage: CIPROFLOXACIN LACTATE, 1 DOSAGE FORMS,1 IN 12 HR
     Route: 065
  64. CIPROFLOXACIN [Suspect]
     Active Substance: CIPROFLOXACIN
     Dosage: CIPROFLOXACIN LACTATE, 1 DOSAGE FORMS,1 IN 12 HR
     Route: 065
  65. CIPROFLOXACIN [Suspect]
     Active Substance: CIPROFLOXACIN
     Dosage: CIPROFLOXACIN LACTATE
     Route: 048
  66. CIPROFLOXACIN [Suspect]
     Active Substance: CIPROFLOXACIN
     Dosage: INFUSION
     Route: 065
  67. CIPROFLOXACIN [Suspect]
     Active Substance: CIPROFLOXACIN
     Dosage: INFUSION
     Route: 065
  68. CIPROFLOXACIN [Suspect]
     Active Substance: CIPROFLOXACIN
     Dosage: INFUSION
     Route: 065
  69. CIPROFLOXACIN [Suspect]
     Active Substance: CIPROFLOXACIN
     Dosage: INFUSION
     Route: 065
  70. CIPROFLOXACIN [Suspect]
     Active Substance: CIPROFLOXACIN
     Dosage: INFUSION
     Route: 065
  71. CLARITHROMYCIN [Suspect]
     Active Substance: CLARITHROMYCIN
     Indication: Product used for unknown indication
     Route: 065
  72. CLARITHROMYCIN [Suspect]
     Active Substance: CLARITHROMYCIN
     Route: 065
  73. CLARITHROMYCIN [Suspect]
     Active Substance: CLARITHROMYCIN
     Route: 065
  74. CLARITHROMYCIN [Suspect]
     Active Substance: CLARITHROMYCIN
     Route: 065
  75. CLARITHROMYCIN [Suspect]
     Active Substance: CLARITHROMYCIN
     Dosage: NOT SPECIFIED
     Route: 065
  76. CLARITHROMYCIN [Suspect]
     Active Substance: CLARITHROMYCIN
     Route: 065
  77. CLARITHROMYCIN [Suspect]
     Active Substance: CLARITHROMYCIN
     Route: 065
  78. CLARITHROMYCIN [Suspect]
     Active Substance: CLARITHROMYCIN
     Route: 065
  79. CLARITHROMYCIN [Suspect]
     Active Substance: CLARITHROMYCIN
     Route: 065
  80. CLARITHROMYCIN [Suspect]
     Active Substance: CLARITHROMYCIN
     Route: 065
  81. CODEINE [Suspect]
     Active Substance: CODEINE
     Indication: Migraine
     Route: 065
  82. CODEINE [Suspect]
     Active Substance: CODEINE
     Route: 065
  83. CODEINE [Suspect]
     Active Substance: CODEINE
     Route: 065
  84. CODEINE [Suspect]
     Active Substance: CODEINE
     Route: 065
  85. CODEINE [Suspect]
     Active Substance: CODEINE
     Route: 048
  86. CODEINE [Suspect]
     Active Substance: CODEINE
     Route: 048
  87. CODEINE [Suspect]
     Active Substance: CODEINE
     Route: 065
  88. DULOXETINE [Suspect]
     Active Substance: DULOXETINE
     Indication: Migraine
     Route: 065
  89. DULOXETINE [Suspect]
     Active Substance: DULOXETINE
     Route: 065
  90. DULOXETINE [Suspect]
     Active Substance: DULOXETINE
     Route: 065
  91. DULOXETINE [Suspect]
     Active Substance: DULOXETINE
     Route: 065
  92. FLUCONAZOLE [Suspect]
     Active Substance: FLUCONAZOLE
     Indication: Migraine
     Route: 065
  93. FLUCONAZOLE [Suspect]
     Active Substance: FLUCONAZOLE
     Route: 065
  94. FLUCONAZOLE [Suspect]
     Active Substance: FLUCONAZOLE
     Route: 065
  95. FLUCONAZOLE [Suspect]
     Active Substance: FLUCONAZOLE
     Route: 065
  96. FLUCONAZOLE [Suspect]
     Active Substance: FLUCONAZOLE
     Route: 065
  97. HYDROMORPHONE HYDROCHLORIDE [Suspect]
     Active Substance: HYDROMORPHONE HYDROCHLORIDE
     Indication: Migraine
     Route: 065
  98. HYDROMORPHONE HYDROCHLORIDE [Suspect]
     Active Substance: HYDROMORPHONE HYDROCHLORIDE
     Route: 065
  99. HYDROMORPHONE HYDROCHLORIDE [Suspect]
     Active Substance: HYDROMORPHONE HYDROCHLORIDE
     Route: 065
  100. HYDROMORPHONE HYDROCHLORIDE [Suspect]
     Active Substance: HYDROMORPHONE HYDROCHLORIDE
     Route: 065
  101. HYDROMORPHONE HYDROCHLORIDE [Suspect]
     Active Substance: HYDROMORPHONE HYDROCHLORIDE
     Route: 065
  102. HYDROMORPHONE HYDROCHLORIDE [Suspect]
     Active Substance: HYDROMORPHONE HYDROCHLORIDE
     Route: 065
  103. HYDROMORPHONE HYDROCHLORIDE [Suspect]
     Active Substance: HYDROMORPHONE HYDROCHLORIDE
     Route: 065
  104. HYDROMORPHONE HYDROCHLORIDE [Suspect]
     Active Substance: HYDROMORPHONE HYDROCHLORIDE
     Route: 065
  105. HYDROMORPHONE HYDROCHLORIDE [Suspect]
     Active Substance: HYDROMORPHONE HYDROCHLORIDE
     Route: 065
  106. HYDROMORPHONE HYDROCHLORIDE [Suspect]
     Active Substance: HYDROMORPHONE HYDROCHLORIDE
     Route: 065
  107. HYDROMORPHONE HYDROCHLORIDE [Suspect]
     Active Substance: HYDROMORPHONE HYDROCHLORIDE
     Route: 065
  108. HYDROMORPHONE HYDROCHLORIDE [Suspect]
     Active Substance: HYDROMORPHONE HYDROCHLORIDE
     Route: 065
  109. HYDROMORPHONE HYDROCHLORIDE [Suspect]
     Active Substance: HYDROMORPHONE HYDROCHLORIDE
     Route: 065
  110. HYDROMORPHONE HYDROCHLORIDE [Suspect]
     Active Substance: HYDROMORPHONE HYDROCHLORIDE
     Route: 065
  111. HYDROMORPHONE HYDROCHLORIDE [Suspect]
     Active Substance: HYDROMORPHONE HYDROCHLORIDE
     Route: 065
  112. HYDROMORPHONE HYDROCHLORIDE [Suspect]
     Active Substance: HYDROMORPHONE HYDROCHLORIDE
     Route: 065
  113. HYDROMORPHONE HYDROCHLORIDE [Suspect]
     Active Substance: HYDROMORPHONE HYDROCHLORIDE
     Dosage: HYDROMORPHONE HYDROCHLORIDE
     Route: 005
  114. HYDROMORPHONE HYDROCHLORIDE [Suspect]
     Active Substance: HYDROMORPHONE HYDROCHLORIDE
     Route: 065
  115. HYDROMORPHONE HYDROCHLORIDE [Suspect]
     Active Substance: HYDROMORPHONE HYDROCHLORIDE
     Route: 065
  116. HYDROMORPHONE HYDROCHLORIDE [Suspect]
     Active Substance: HYDROMORPHONE HYDROCHLORIDE
     Route: 065
  117. HYDROMORPHONE HYDROCHLORIDE [Suspect]
     Active Substance: HYDROMORPHONE HYDROCHLORIDE
     Route: 065
  118. HYDROMORPHONE HYDROCHLORIDE [Suspect]
     Active Substance: HYDROMORPHONE HYDROCHLORIDE
     Route: 065
  119. HYDROMORPHONE HYDROCHLORIDE [Suspect]
     Active Substance: HYDROMORPHONE HYDROCHLORIDE
     Route: 065
  120. HYDROMORPHONE HYDROCHLORIDE [Suspect]
     Active Substance: HYDROMORPHONE HYDROCHLORIDE
     Route: 065
  121. HYDROMORPHONE HYDROCHLORIDE [Suspect]
     Active Substance: HYDROMORPHONE HYDROCHLORIDE
     Dosage: HYDROMORPHONE HYDROCHLORIDE
     Route: 065
  122. HYDROMORPHONE HYDROCHLORIDE [Suspect]
     Active Substance: HYDROMORPHONE HYDROCHLORIDE
     Dosage: HYDROMORPHONE
     Route: 005
  123. HYDROMORPHONE HYDROCHLORIDE [Suspect]
     Active Substance: HYDROMORPHONE HYDROCHLORIDE
     Route: 065
  124. HYDROMORPHONE HYDROCHLORIDE [Suspect]
     Active Substance: HYDROMORPHONE HYDROCHLORIDE
     Route: 065
  125. HYDROMORPHONE HYDROCHLORIDE [Suspect]
     Active Substance: HYDROMORPHONE HYDROCHLORIDE
     Dosage: HYDROMORPHONE HYDROCHLORIDE
     Route: 005
  126. HYDROMORPHONE HYDROCHLORIDE [Suspect]
     Active Substance: HYDROMORPHONE HYDROCHLORIDE
     Dosage: 12 ADMINISTRATIONS GIVEN (1 DOSAGE FORMS,1 IN 12 HR)
     Route: 065
  127. HYDROMORPHONE HYDROCHLORIDE [Suspect]
     Active Substance: HYDROMORPHONE HYDROCHLORIDE
     Dosage: 1 DOSAGE FORMS,1 IN 12 HR
     Route: 065
  128. HYDROMORPHONE HYDROCHLORIDE [Suspect]
     Active Substance: HYDROMORPHONE HYDROCHLORIDE
     Dosage: 1 DOSAGE FORMS,1 IN 12 HR
     Route: 065
  129. HYDROMORPHONE HYDROCHLORIDE [Suspect]
     Active Substance: HYDROMORPHONE HYDROCHLORIDE
     Dosage: 1 DOSAGE FORMS,1 IN 12 HR, 2 ADMINISTRATIONS GIVEN
     Route: 065
  130. HYDROMORPHONE HYDROCHLORIDE [Suspect]
     Active Substance: HYDROMORPHONE HYDROCHLORIDE
     Dosage: 1 DOSAGE FORMS,1 IN 12 HR
     Route: 065
  131. HYDROMORPHONE HYDROCHLORIDE [Suspect]
     Active Substance: HYDROMORPHONE HYDROCHLORIDE
     Dosage: 1 DOSAGE FORMS,1 IN 12 HR
     Route: 065
  132. HYDROMORPHONE HYDROCHLORIDE [Suspect]
     Active Substance: HYDROMORPHONE HYDROCHLORIDE
     Dosage: 1 DOSAGE FORMS,1 IN 12 HR
     Route: 065
  133. HYDROMORPHONE HYDROCHLORIDE [Suspect]
     Active Substance: HYDROMORPHONE HYDROCHLORIDE
     Dosage: 1 DOSAGE FORMS,1 IN 12 HR, 3 ADMINISTRATIONS GIVEN
     Route: 065
  134. HYDROMORPHONE HYDROCHLORIDE [Suspect]
     Active Substance: HYDROMORPHONE HYDROCHLORIDE
     Dosage: 1 DOSAGE FORMS,1 IN 12 HR, 2 ADMINISTRATIONS GIVEN
     Route: 065
  135. HYDROMORPHONE HYDROCHLORIDE [Suspect]
     Active Substance: HYDROMORPHONE HYDROCHLORIDE
     Dosage: 1 DOSAGE FORMS,1 IN 12 HR, 3 ADMINISTRATIONS GIVEN
     Route: 065
  136. INDOMETHACIN [Suspect]
     Active Substance: INDOMETHACIN
     Indication: Migraine
     Dosage: 2 TO 15 DR (DOSE : 1DF, 1 IN 12HR),16(2DF), 17(1 IN 12 HR), 18 (2DF, 1IN 24HR), 19(1 DF)
     Route: 054
  137. INDOMETHACIN [Suspect]
     Active Substance: INDOMETHACIN
     Dosage: 20 (2 DOSAGE FORMS,1 IN 12 HR), 21 (1DF , 1IN 12HR) , 23 (1DF),24 TO 38 (1 DF (1 IN 12HR)
     Route: 054
  138. INDOMETHACIN [Suspect]
     Active Substance: INDOMETHACIN
     Route: 054
  139. INDOMETHACIN [Suspect]
     Active Substance: INDOMETHACIN
     Route: 054
  140. INDOMETHACIN [Suspect]
     Active Substance: INDOMETHACIN
     Route: 054
  141. INDOMETHACIN [Suspect]
     Active Substance: INDOMETHACIN
     Route: 054
  142. INDOMETHACIN [Suspect]
     Active Substance: INDOMETHACIN
     Route: 054
  143. INDOMETHACIN [Suspect]
     Active Substance: INDOMETHACIN
     Route: 054
  144. INDOMETHACIN [Suspect]
     Active Substance: INDOMETHACIN
     Route: 054
  145. INDOMETHACIN [Suspect]
     Active Substance: INDOMETHACIN
     Route: 054
  146. INDOMETHACIN [Suspect]
     Active Substance: INDOMETHACIN
     Route: 054
  147. INDOMETHACIN [Suspect]
     Active Substance: INDOMETHACIN
     Route: 054
  148. INDOMETHACIN [Suspect]
     Active Substance: INDOMETHACIN
     Route: 054
  149. INDOMETHACIN [Suspect]
     Active Substance: INDOMETHACIN
     Route: 054
  150. INDOMETHACIN [Suspect]
     Active Substance: INDOMETHACIN
     Route: 054
  151. INDOMETHACIN [Suspect]
     Active Substance: INDOMETHACIN
     Route: 054
  152. INDOMETHACIN [Suspect]
     Active Substance: INDOMETHACIN
     Route: 054
  153. INDOMETHACIN [Suspect]
     Active Substance: INDOMETHACIN
     Route: 054
  154. INDOMETHACIN [Suspect]
     Active Substance: INDOMETHACIN
     Route: 054
  155. INDOMETHACIN [Suspect]
     Active Substance: INDOMETHACIN
     Route: 054
  156. INDOMETHACIN [Suspect]
     Active Substance: INDOMETHACIN
     Route: 054
  157. INDOMETHACIN [Suspect]
     Active Substance: INDOMETHACIN
     Route: 054
  158. INDOMETHACIN [Suspect]
     Active Substance: INDOMETHACIN
     Route: 054
  159. INDOMETHACIN [Suspect]
     Active Substance: INDOMETHACIN
     Route: 054
  160. INDOMETHACIN [Suspect]
     Active Substance: INDOMETHACIN
     Route: 054
  161. INDOMETHACIN [Suspect]
     Active Substance: INDOMETHACIN
     Route: 054
  162. INDOMETHACIN [Suspect]
     Active Substance: INDOMETHACIN
     Route: 054
  163. INDOMETHACIN [Suspect]
     Active Substance: INDOMETHACIN
     Route: 054
  164. INDOMETHACIN [Suspect]
     Active Substance: INDOMETHACIN
     Route: 065
  165. INDOMETHACIN [Suspect]
     Active Substance: INDOMETHACIN
     Route: 054
  166. INDOMETHACIN [Suspect]
     Active Substance: INDOMETHACIN
     Route: 054
  167. INDOMETHACIN [Suspect]
     Active Substance: INDOMETHACIN
     Route: 054
  168. INDOMETHACIN [Suspect]
     Active Substance: INDOMETHACIN
     Route: 054
  169. INDOMETHACIN [Suspect]
     Active Substance: INDOMETHACIN
     Route: 054
  170. INDOMETHACIN [Suspect]
     Active Substance: INDOMETHACIN
     Route: 054
  171. INDOMETHACIN [Suspect]
     Active Substance: INDOMETHACIN
     Route: 054
  172. INDOMETHACIN [Suspect]
     Active Substance: INDOMETHACIN
     Route: 054
  173. INDOMETHACIN [Suspect]
     Active Substance: INDOMETHACIN
     Route: 054
  174. INDOMETHACIN [Suspect]
     Active Substance: INDOMETHACIN
     Route: 054
  175. INDOMETHACIN [Suspect]
     Active Substance: INDOMETHACIN
     Route: 054
  176. INDOMETHACIN [Suspect]
     Active Substance: INDOMETHACIN
     Route: 054
  177. INDOMETHACIN [Suspect]
     Active Substance: INDOMETHACIN
     Route: 054
  178. INDOMETHACIN [Suspect]
     Active Substance: INDOMETHACIN
     Route: 054
  179. INDOMETHACIN [Suspect]
     Active Substance: INDOMETHACIN
     Route: 054
  180. LISINOPRIL [Suspect]
     Active Substance: LISINOPRIL
     Indication: Migraine
     Route: 065
  181. LISINOPRIL [Suspect]
     Active Substance: LISINOPRIL
     Route: 065
  182. LISINOPRIL [Suspect]
     Active Substance: LISINOPRIL
     Route: 065
  183. LISINOPRIL [Suspect]
     Active Substance: LISINOPRIL
     Route: 065
  184. LISINOPRIL [Suspect]
     Active Substance: LISINOPRIL
     Route: 065
  185. LISINOPRIL [Suspect]
     Active Substance: LISINOPRIL
     Route: 065
  186. LISINOPRIL [Suspect]
     Active Substance: LISINOPRIL
     Route: 065
  187. LISINOPRIL [Suspect]
     Active Substance: LISINOPRIL
     Route: 048
  188. LISINOPRIL [Suspect]
     Active Substance: LISINOPRIL
     Route: 065
  189. LISINOPRIL [Suspect]
     Active Substance: LISINOPRIL
     Dosage: 2 DOSAGE FORMS (2 DOSAGE FORMS,1 IN 1 D)
     Route: 065
  190. LISINOPRIL [Suspect]
     Active Substance: LISINOPRIL
     Dosage: 1 DOSAGE FORMS (1 DOSAGE FORMS,1 IN 1 D)
     Route: 065
  191. LISINOPRIL [Suspect]
     Active Substance: LISINOPRIL
     Dosage: 1 DOSAGE FORMS (1 DOSAGE FORMS,1 IN 1 D)
     Route: 065
  192. LISINOPRIL [Suspect]
     Active Substance: LISINOPRIL
     Dosage: 1 DOSAGE FORMS (1 DOSAGE FORMS,1 IN 1 D)
     Route: 048
  193. MOMETASONE [Suspect]
     Active Substance: MOMETASONE
     Indication: Migraine
     Dosage: MOMETASONE; SPRAY, METERED DOSE (2 DOSAGE FORMS,1 IN 8 HR)
     Route: 065
  194. MOMETASONE [Suspect]
     Active Substance: MOMETASONE
     Route: 055
  195. MOMETASONE [Suspect]
     Active Substance: MOMETASONE
     Route: 065
  196. MOMETASONE [Suspect]
     Active Substance: MOMETASONE
     Route: 065
  197. MOMETASONE [Suspect]
     Active Substance: MOMETASONE
     Route: 065
  198. MOMETASONE [Suspect]
     Active Substance: MOMETASONE
     Route: 065
  199. MOMETASONE [Suspect]
     Active Substance: MOMETASONE
     Route: 055
  200. MOMETASONE [Suspect]
     Active Substance: MOMETASONE
     Route: 055
  201. MOMETASONE [Suspect]
     Active Substance: MOMETASONE
     Route: 065
  202. MOMETASONE [Suspect]
     Active Substance: MOMETASONE
     Route: 065
  203. MOMETASONE [Suspect]
     Active Substance: MOMETASONE
     Route: 065
  204. MOMETASONE [Suspect]
     Active Substance: MOMETASONE
     Route: 065
  205. MOMETASONE [Suspect]
     Active Substance: MOMETASONE
     Route: 065
  206. MOMETASONE [Suspect]
     Active Substance: MOMETASONE
     Route: 065
  207. RABEPRAZOLE SODIUM [Suspect]
     Active Substance: RABEPRAZOLE SODIUM
     Indication: Migraine
     Route: 065
  208. RABEPRAZOLE SODIUM [Suspect]
     Active Substance: RABEPRAZOLE SODIUM
     Route: 065
  209. RABEPRAZOLE SODIUM [Suspect]
     Active Substance: RABEPRAZOLE SODIUM
     Route: 065
  210. RABEPRAZOLE SODIUM [Suspect]
     Active Substance: RABEPRAZOLE SODIUM
     Route: 065
  211. RABEPRAZOLE SODIUM [Suspect]
     Active Substance: RABEPRAZOLE SODIUM
     Route: 065
  212. RABEPRAZOLE SODIUM [Suspect]
     Active Substance: RABEPRAZOLE SODIUM
     Route: 065
  213. RABEPRAZOLE SODIUM [Suspect]
     Active Substance: RABEPRAZOLE SODIUM
     Route: 065
  214. RABEPRAZOLE SODIUM [Suspect]
     Active Substance: RABEPRAZOLE SODIUM
     Route: 065
  215. RABEPRAZOLE SODIUM [Suspect]
     Active Substance: RABEPRAZOLE SODIUM
     Route: 065
  216. RABEPRAZOLE SODIUM [Suspect]
     Active Substance: RABEPRAZOLE SODIUM
     Route: 065
  217. RABEPRAZOLE SODIUM [Suspect]
     Active Substance: RABEPRAZOLE SODIUM
     Route: 065
  218. RABEPRAZOLE SODIUM [Suspect]
     Active Substance: RABEPRAZOLE SODIUM
     Route: 065
  219. RABEPRAZOLE SODIUM [Suspect]
     Active Substance: RABEPRAZOLE SODIUM
     Route: 065
  220. RABEPRAZOLE SODIUM [Suspect]
     Active Substance: RABEPRAZOLE SODIUM
     Route: 065
  221. RABEPRAZOLE SODIUM [Suspect]
     Active Substance: RABEPRAZOLE SODIUM
     Route: 065
  222. RABEPRAZOLE SODIUM [Suspect]
     Active Substance: RABEPRAZOLE SODIUM
     Route: 065
  223. RABEPRAZOLE SODIUM [Suspect]
     Active Substance: RABEPRAZOLE SODIUM
     Route: 065
  224. RABEPRAZOLE SODIUM [Suspect]
     Active Substance: RABEPRAZOLE SODIUM
     Route: 065
  225. RABEPRAZOLE SODIUM [Suspect]
     Active Substance: RABEPRAZOLE SODIUM
     Route: 065
  226. RABEPRAZOLE SODIUM [Suspect]
     Active Substance: RABEPRAZOLE SODIUM
     Route: 065
  227. RABEPRAZOLE SODIUM [Suspect]
     Active Substance: RABEPRAZOLE SODIUM
     Route: 065
  228. RABEPRAZOLE SODIUM [Suspect]
     Active Substance: RABEPRAZOLE SODIUM
     Route: 065
  229. RABEPRAZOLE SODIUM [Suspect]
     Active Substance: RABEPRAZOLE SODIUM
     Route: 048
  230. RABEPRAZOLE SODIUM [Suspect]
     Active Substance: RABEPRAZOLE SODIUM
     Route: 048
  231. RABEPRAZOLE SODIUM [Suspect]
     Active Substance: RABEPRAZOLE SODIUM
     Dosage: RABEPRAZOLE
     Route: 065
  232. RABEPRAZOLE SODIUM [Suspect]
     Active Substance: RABEPRAZOLE SODIUM
     Dosage: RABEPRAZOLE
     Route: 065
  233. RABEPRAZOLE SODIUM [Suspect]
     Active Substance: RABEPRAZOLE SODIUM
     Route: 065
  234. RABEPRAZOLE SODIUM [Suspect]
     Active Substance: RABEPRAZOLE SODIUM
     Route: 048
  235. RABEPRAZOLE SODIUM [Suspect]
     Active Substance: RABEPRAZOLE SODIUM
     Dosage: RABEPRAZOLE
     Route: 065
  236. RABEPRAZOLE SODIUM [Suspect]
     Active Substance: RABEPRAZOLE SODIUM
     Dosage: RABEPRAZOLE
     Route: 065
  237. RABEPRAZOLE SODIUM [Suspect]
     Active Substance: RABEPRAZOLE SODIUM
     Dosage: RABEPRAZOLE
     Route: 065
  238. RABEPRAZOLE SODIUM [Suspect]
     Active Substance: RABEPRAZOLE SODIUM
     Route: 065
  239. RABEPRAZOLE SODIUM [Suspect]
     Active Substance: RABEPRAZOLE SODIUM
     Route: 048
  240. RABEPRAZOLE SODIUM [Suspect]
     Active Substance: RABEPRAZOLE SODIUM
     Route: 048
  241. RABEPRAZOLE SODIUM [Suspect]
     Active Substance: RABEPRAZOLE SODIUM
     Route: 065
  242. RABEPRAZOLE SODIUM [Suspect]
     Active Substance: RABEPRAZOLE SODIUM
     Route: 065
  243. RABEPRAZOLE SODIUM [Suspect]
     Active Substance: RABEPRAZOLE SODIUM
     Route: 065
  244. RABEPRAZOLE SODIUM [Suspect]
     Active Substance: RABEPRAZOLE SODIUM
     Route: 065
  245. RABEPRAZOLE SODIUM [Suspect]
     Active Substance: RABEPRAZOLE SODIUM
     Route: 065
  246. RABEPRAZOLE SODIUM [Suspect]
     Active Substance: RABEPRAZOLE SODIUM
     Dosage: 2 ADMINISTRATIONS GIVEN
     Route: 065
  247. RABEPRAZOLE SODIUM [Suspect]
     Active Substance: RABEPRAZOLE SODIUM
     Route: 065
  248. RABEPRAZOLE SODIUM [Suspect]
     Active Substance: RABEPRAZOLE SODIUM
     Route: 065
  249. RABEPRAZOLE SODIUM [Suspect]
     Active Substance: RABEPRAZOLE SODIUM
     Route: 065
  250. RABEPRAZOLE SODIUM [Suspect]
     Active Substance: RABEPRAZOLE SODIUM
     Dosage: 2 ADMINISTRATIONS GIVEN
     Route: 065
  251. RABEPRAZOLE SODIUM [Suspect]
     Active Substance: RABEPRAZOLE SODIUM
     Dosage: 2 ADMINISTRATIONS GIVEN
     Route: 065
  252. RABEPRAZOLE SODIUM [Suspect]
     Active Substance: RABEPRAZOLE SODIUM
     Dosage: 2 ADMINISTRATIONS GIVEN
     Route: 065
  253. RABEPRAZOLE SODIUM [Suspect]
     Active Substance: RABEPRAZOLE SODIUM
     Dosage: 2 ADMINISTRATIONS GIVEN
     Route: 065
  254. RABEPRAZOLE SODIUM [Suspect]
     Active Substance: RABEPRAZOLE SODIUM
     Dosage: 2 ADMINISTRATIONS GIVEN
     Route: 065
  255. RABEPRAZOLE SODIUM [Suspect]
     Active Substance: RABEPRAZOLE SODIUM
     Dosage: 2 ADMINISTRATIONS GIVEN
     Route: 065
  256. RABEPRAZOLE SODIUM [Suspect]
     Active Substance: RABEPRAZOLE SODIUM
     Dosage: 2 ADMINISTRATIONS GIVEN
     Route: 065
  257. TOPIRAMATE [Suspect]
     Active Substance: TOPIRAMATE
     Indication: Migraine
     Route: 065
  258. TOPIRAMATE [Suspect]
     Active Substance: TOPIRAMATE
     Route: 065
  259. TRIMETHOPRIM [Suspect]
     Active Substance: TRIMETHOPRIM
     Indication: Product used for unknown indication
     Route: 065
  260. TRIMETHOPRIM [Suspect]
     Active Substance: TRIMETHOPRIM
     Route: 065
  261. TRIMETHOPRIM [Suspect]
     Active Substance: TRIMETHOPRIM
     Route: 065
  262. TRIMETHOPRIM [Suspect]
     Active Substance: TRIMETHOPRIM
     Route: 065
  263. ZOPICLONE [Suspect]
     Active Substance: ZOPICLONE
     Indication: Migraine
     Route: 065
  264. ZOPICLONE [Suspect]
     Active Substance: ZOPICLONE
     Route: 048
  265. ZOPICLONE [Suspect]
     Active Substance: ZOPICLONE
     Route: 065
  266. ZOPICLONE [Suspect]
     Active Substance: ZOPICLONE
     Route: 065
  267. ZOPICLONE [Suspect]
     Active Substance: ZOPICLONE
     Route: 065
  268. ZOPICLONE [Suspect]
     Active Substance: ZOPICLONE
     Route: 065
  269. ZOPICLONE [Suspect]
     Active Substance: ZOPICLONE
     Route: 065
  270. ZOPICLONE [Suspect]
     Active Substance: ZOPICLONE
     Route: 065
  271. ZOPICLONE [Suspect]
     Active Substance: ZOPICLONE
     Route: 065
  272. ZOPICLONE [Suspect]
     Active Substance: ZOPICLONE
     Route: 065
  273. ZOPICLONE [Suspect]
     Active Substance: ZOPICLONE
     Route: 065
  274. ZOPICLONE [Suspect]
     Active Substance: ZOPICLONE
     Route: 065
  275. ZOPICLONE [Suspect]
     Active Substance: ZOPICLONE
     Route: 065
  276. ZOPICLONE [Suspect]
     Active Substance: ZOPICLONE
     Route: 065
  277. ZOPICLONE [Suspect]
     Active Substance: ZOPICLONE
     Route: 065
  278. ZOPICLONE [Suspect]
     Active Substance: ZOPICLONE
     Route: 065
  279. ZOPICLONE [Suspect]
     Active Substance: ZOPICLONE
     Route: 065
  280. ZOPICLONE [Suspect]
     Active Substance: ZOPICLONE
     Route: 065
  281. ZOPICLONE [Suspect]
     Active Substance: ZOPICLONE
     Route: 065
  282. ZOPICLONE [Suspect]
     Active Substance: ZOPICLONE
     Route: 065
  283. ZOPICLONE [Suspect]
     Active Substance: ZOPICLONE
     Route: 065
  284. ZOPICLONE [Suspect]
     Active Substance: ZOPICLONE
     Route: 065
  285. ZOPICLONE [Suspect]
     Active Substance: ZOPICLONE
     Route: 065
  286. ZOPICLONE [Suspect]
     Active Substance: ZOPICLONE
     Route: 065
  287. ZOPICLONE [Suspect]
     Active Substance: ZOPICLONE
     Route: 065
  288. ZOPICLONE [Suspect]
     Active Substance: ZOPICLONE
     Route: 065
  289. ZOPICLONE [Suspect]
     Active Substance: ZOPICLONE
     Route: 065
  290. ZOPICLONE [Suspect]
     Active Substance: ZOPICLONE
     Route: 065
  291. ZOPICLONE [Suspect]
     Active Substance: ZOPICLONE
     Route: 065
  292. ZOPICLONE [Suspect]
     Active Substance: ZOPICLONE
     Route: 048
  293. ZOPICLONE [Suspect]
     Active Substance: ZOPICLONE
     Route: 065
  294. ZOPICLONE [Suspect]
     Active Substance: ZOPICLONE
     Route: 065
  295. ZOPICLONE [Suspect]
     Active Substance: ZOPICLONE
     Route: 065
  296. ZOPICLONE [Suspect]
     Active Substance: ZOPICLONE
     Route: 065
  297. ZOPICLONE [Suspect]
     Active Substance: ZOPICLONE
     Route: 065
  298. ZOPICLONE [Suspect]
     Active Substance: ZOPICLONE
     Route: 065
  299. ZOPICLONE [Suspect]
     Active Substance: ZOPICLONE
     Route: 065
  300. SUMATRIPTAN SUCCINATE [Suspect]
     Active Substance: SUMATRIPTAN SUCCINATE
     Indication: Migraine
     Route: 065
  301. SUMATRIPTAN SUCCINATE [Suspect]
     Active Substance: SUMATRIPTAN SUCCINATE
     Route: 065
  302. SUMATRIPTAN SUCCINATE [Suspect]
     Active Substance: SUMATRIPTAN SUCCINATE
     Route: 065
  303. SUMATRIPTAN SUCCINATE [Suspect]
     Active Substance: SUMATRIPTAN SUCCINATE
     Route: 065
  304. SUMATRIPTAN SUCCINATE [Suspect]
     Active Substance: SUMATRIPTAN SUCCINATE
     Route: 065
  305. SUMATRIPTAN SUCCINATE [Suspect]
     Active Substance: SUMATRIPTAN SUCCINATE
     Route: 065
  306. SUMATRIPTAN SUCCINATE [Suspect]
     Active Substance: SUMATRIPTAN SUCCINATE
     Route: 065
  307. SUMATRIPTAN SUCCINATE [Suspect]
     Active Substance: SUMATRIPTAN SUCCINATE
     Route: 058
  308. SUMATRIPTAN SUCCINATE [Suspect]
     Active Substance: SUMATRIPTAN SUCCINATE
     Route: 065
  309. SUMATRIPTAN SUCCINATE [Suspect]
     Active Substance: SUMATRIPTAN SUCCINATE
     Route: 065
  310. SERTRALINE HYDROCHLORIDE [Suspect]
     Active Substance: SERTRALINE HYDROCHLORIDE
     Indication: Migraine
     Route: 065
  311. SERTRALINE HYDROCHLORIDE [Suspect]
     Active Substance: SERTRALINE HYDROCHLORIDE
     Route: 065
  312. SERTRALINE HYDROCHLORIDE [Suspect]
     Active Substance: SERTRALINE HYDROCHLORIDE
     Route: 065
  313. SERTRALINE HYDROCHLORIDE [Suspect]
     Active Substance: SERTRALINE HYDROCHLORIDE
     Route: 065
  314. SERTRALINE HYDROCHLORIDE [Suspect]
     Active Substance: SERTRALINE HYDROCHLORIDE
     Route: 065
  315. SERTRALINE HYDROCHLORIDE [Suspect]
     Active Substance: SERTRALINE HYDROCHLORIDE
     Route: 065
  316. PROPRANOLOL HYDROCHLORIDE [Suspect]
     Active Substance: PROPRANOLOL HYDROCHLORIDE
     Indication: Migraine
     Route: 065
  317. PROPRANOLOL HYDROCHLORIDE [Suspect]
     Active Substance: PROPRANOLOL HYDROCHLORIDE
     Route: 065
  318. PROPRANOLOL HYDROCHLORIDE [Suspect]
     Active Substance: PROPRANOLOL HYDROCHLORIDE
     Dosage: PROPRANOLOL HYDROCHLORIDE
     Route: 048
  319. PROPRANOLOL HYDROCHLORIDE [Suspect]
     Active Substance: PROPRANOLOL HYDROCHLORIDE
     Route: 048
  320. PROPRANOLOL HYDROCHLORIDE [Suspect]
     Active Substance: PROPRANOLOL HYDROCHLORIDE
     Route: 065
  321. PROPRANOLOL HYDROCHLORIDE [Suspect]
     Active Substance: PROPRANOLOL HYDROCHLORIDE
     Dosage: PROPRANOLOL
     Route: 065
  322. PROPRANOLOL HYDROCHLORIDE [Suspect]
     Active Substance: PROPRANOLOL HYDROCHLORIDE
     Dosage: PROPRANOLOL HYDROCHLORIDE
     Route: 065
  323. PROPRANOLOL HYDROCHLORIDE [Suspect]
     Active Substance: PROPRANOLOL HYDROCHLORIDE
     Route: 065
  324. PROPRANOLOL HYDROCHLORIDE [Suspect]
     Active Substance: PROPRANOLOL HYDROCHLORIDE
     Route: 065
  325. PROPRANOLOL HYDROCHLORIDE [Suspect]
     Active Substance: PROPRANOLOL HYDROCHLORIDE
     Route: 065
  326. PROPRANOLOL HYDROCHLORIDE [Suspect]
     Active Substance: PROPRANOLOL HYDROCHLORIDE
     Route: 048
  327. PROPRANOLOL HYDROCHLORIDE [Suspect]
     Active Substance: PROPRANOLOL HYDROCHLORIDE
     Route: 065
  328. PROPRANOLOL HYDROCHLORIDE [Suspect]
     Active Substance: PROPRANOLOL HYDROCHLORIDE
     Route: 048
  329. PROPRANOLOL HYDROCHLORIDE [Suspect]
     Active Substance: PROPRANOLOL HYDROCHLORIDE
     Route: 065
  330. PROPRANOLOL HYDROCHLORIDE [Suspect]
     Active Substance: PROPRANOLOL HYDROCHLORIDE
     Route: 048
  331. PROPRANOLOL HYDROCHLORIDE [Suspect]
     Active Substance: PROPRANOLOL HYDROCHLORIDE
     Route: 048
  332. PROPRANOLOL HYDROCHLORIDE [Suspect]
     Active Substance: PROPRANOLOL HYDROCHLORIDE
     Route: 048
  333. PROPRANOLOL HYDROCHLORIDE [Suspect]
     Active Substance: PROPRANOLOL HYDROCHLORIDE
     Route: 065
  334. PROPRANOLOL HYDROCHLORIDE [Suspect]
     Active Substance: PROPRANOLOL HYDROCHLORIDE
     Route: 065
  335. PROPRANOLOL HYDROCHLORIDE [Suspect]
     Active Substance: PROPRANOLOL HYDROCHLORIDE
     Route: 065
  336. PROPRANOLOL HYDROCHLORIDE [Suspect]
     Active Substance: PROPRANOLOL HYDROCHLORIDE
     Route: 065
  337. LANSOPRAZOLE [Suspect]
     Active Substance: LANSOPRAZOLE
     Indication: Migraine
     Route: 065
  338. LANSOPRAZOLE [Suspect]
     Active Substance: LANSOPRAZOLE
     Route: 065
  339. LANSOPRAZOLE [Suspect]
     Active Substance: LANSOPRAZOLE
     Route: 065
  340. ESCITALOPRAM [Suspect]
     Active Substance: ESCITALOPRAM OXALATE
     Indication: Migraine
     Route: 065
  341. ESCITALOPRAM [Suspect]
     Active Substance: ESCITALOPRAM OXALATE
     Route: 065
  342. ESCITALOPRAM [Suspect]
     Active Substance: ESCITALOPRAM OXALATE
     Route: 048
  343. ESCITALOPRAM [Suspect]
     Active Substance: ESCITALOPRAM OXALATE
     Route: 065
  344. RIZATRIPTAN BENZOATE [Suspect]
     Active Substance: RIZATRIPTAN BENZOATE
     Indication: Migraine
     Route: 065
  345. RIZATRIPTAN BENZOATE [Suspect]
     Active Substance: RIZATRIPTAN BENZOATE
     Route: 065
  346. RIZATRIPTAN BENZOATE [Suspect]
     Active Substance: RIZATRIPTAN BENZOATE
     Dosage: RIZATRIPTAN BENZOATE
     Route: 065
  347. RIZATRIPTAN BENZOATE [Suspect]
     Active Substance: RIZATRIPTAN BENZOATE
     Dosage: RIZATRIPTAN BENZOATE
     Route: 065
  348. RIZATRIPTAN BENZOATE [Suspect]
     Active Substance: RIZATRIPTAN BENZOATE
     Route: 065
  349. RIZATRIPTAN BENZOATE [Suspect]
     Active Substance: RIZATRIPTAN BENZOATE
     Dosage: RIZATRIPTAN
     Route: 065
  350. RIZATRIPTAN BENZOATE [Suspect]
     Active Substance: RIZATRIPTAN BENZOATE
     Route: 065
  351. RIZATRIPTAN BENZOATE [Suspect]
     Active Substance: RIZATRIPTAN BENZOATE
     Route: 065
  352. RIZATRIPTAN BENZOATE [Suspect]
     Active Substance: RIZATRIPTAN BENZOATE
     Dosage: RIZATRIPTAN
     Route: 065
  353. RIZATRIPTAN BENZOATE [Suspect]
     Active Substance: RIZATRIPTAN BENZOATE
     Route: 065
  354. RIZATRIPTAN BENZOATE [Suspect]
     Active Substance: RIZATRIPTAN BENZOATE
     Dosage: RIZATRIPTAN
     Route: 065
  355. RIZATRIPTAN BENZOATE [Suspect]
     Active Substance: RIZATRIPTAN BENZOATE
     Dosage: 2 ADMINISTRATIONS GIVEN
     Route: 065
  356. BOTULINUM TOXIN TYPE A [Suspect]
     Active Substance: BOTULINUM TOXIN TYPE A
     Indication: Product used for unknown indication
     Route: 065
  357. BOTULINUM TOXIN TYPE A [Suspect]
     Active Substance: BOTULINUM TOXIN TYPE A
     Route: 065
  358. BOTULINUM TOXIN TYPE A [Suspect]
     Active Substance: BOTULINUM TOXIN TYPE A
     Route: 065
  359. BOTULINUM TOXIN TYPE A [Suspect]
     Active Substance: BOTULINUM TOXIN TYPE A
     Route: 030
  360. BOTULINUM TOXIN TYPE A [Suspect]
     Active Substance: BOTULINUM TOXIN TYPE A
     Route: 065
  361. BOTULINUM TOXIN TYPE A [Suspect]
     Active Substance: BOTULINUM TOXIN TYPE A
     Route: 030
  362. BOTULINUM TOXIN TYPE A [Suspect]
     Active Substance: BOTULINUM TOXIN TYPE A
     Route: 065
  363. BOTULINUM TOXIN TYPE A [Suspect]
     Active Substance: BOTULINUM TOXIN TYPE A
     Route: 065
  364. BOTULINUM TOXIN TYPE A [Suspect]
     Active Substance: BOTULINUM TOXIN TYPE A
     Route: 065
  365. BOTULINUM TOXIN TYPE A [Suspect]
     Active Substance: BOTULINUM TOXIN TYPE A
     Route: 065
  366. BOTULINUM TOXIN TYPE A [Suspect]
     Active Substance: BOTULINUM TOXIN TYPE A
     Route: 065
  367. BOTULINUM TOXIN TYPE A [Suspect]
     Active Substance: BOTULINUM TOXIN TYPE A
     Route: 030
  368. BOTULINUM TOXIN TYPE A [Suspect]
     Active Substance: BOTULINUM TOXIN TYPE A
     Route: 065
  369. BOTULINUM TOXIN TYPE A [Suspect]
     Active Substance: BOTULINUM TOXIN TYPE A
     Route: 065
  370. BOTULINUM TOXIN TYPE A [Suspect]
     Active Substance: BOTULINUM TOXIN TYPE A
     Route: 065
  371. BOTULINUM TOXIN TYPE A [Suspect]
     Active Substance: BOTULINUM TOXIN TYPE A
     Route: 065
  372. BOTULINUM TOXIN TYPE A [Suspect]
     Active Substance: BOTULINUM TOXIN TYPE A
     Route: 065
  373. BOTULINUM TOXIN TYPE A [Suspect]
     Active Substance: BOTULINUM TOXIN TYPE A
     Route: 030
  374. BOTULINUM TOXIN TYPE A [Suspect]
     Active Substance: BOTULINUM TOXIN TYPE A
     Route: 065
  375. BOTULINUM TOXIN TYPE A [Suspect]
     Active Substance: BOTULINUM TOXIN TYPE A
     Route: 065
  376. VENLAFAXINE HYDROCHLORIDE [Suspect]
     Active Substance: VENLAFAXINE HYDROCHLORIDE
     Indication: Migraine
     Route: 065
  377. VENLAFAXINE HYDROCHLORIDE [Suspect]
     Active Substance: VENLAFAXINE HYDROCHLORIDE
     Route: 065
  378. VENLAFAXINE HYDROCHLORIDE [Suspect]
     Active Substance: VENLAFAXINE HYDROCHLORIDE
     Route: 065
  379. VENLAFAXINE HYDROCHLORIDE [Suspect]
     Active Substance: VENLAFAXINE HYDROCHLORIDE
     Route: 065
  380. VENLAFAXINE HYDROCHLORIDE [Suspect]
     Active Substance: VENLAFAXINE HYDROCHLORIDE
     Route: 065
  381. VENLAFAXINE HYDROCHLORIDE [Suspect]
     Active Substance: VENLAFAXINE HYDROCHLORIDE
     Route: 065
  382. VENLAFAXINE HYDROCHLORIDE [Suspect]
     Active Substance: VENLAFAXINE HYDROCHLORIDE
     Route: 065
  383. VENLAFAXINE HYDROCHLORIDE [Suspect]
     Active Substance: VENLAFAXINE HYDROCHLORIDE
     Route: 065
  384. VENLAFAXINE HYDROCHLORIDE [Suspect]
     Active Substance: VENLAFAXINE HYDROCHLORIDE
     Route: 065
  385. VENLAFAXINE HYDROCHLORIDE [Suspect]
     Active Substance: VENLAFAXINE HYDROCHLORIDE
     Route: 065
  386. VENLAFAXINE HYDROCHLORIDE [Suspect]
     Active Substance: VENLAFAXINE HYDROCHLORIDE
     Route: 065
  387. AMOXICILLIN TRIHYDRATE [Suspect]
     Active Substance: AMOXICILLIN
     Indication: Product used for unknown indication
     Route: 065
  388. AMOXICILLIN TRIHYDRATE [Suspect]
     Active Substance: AMOXICILLIN
     Route: 065
  389. AMOXICILLIN TRIHYDRATE [Suspect]
     Active Substance: AMOXICILLIN
     Route: 065
  390. AMOXICILLIN TRIHYDRATE [Suspect]
     Active Substance: AMOXICILLIN
     Route: 065
  391. AMOXICILLIN TRIHYDRATE [Suspect]
     Active Substance: AMOXICILLIN
     Route: 065
  392. AMOXICILLIN TRIHYDRATE [Suspect]
     Active Substance: AMOXICILLIN
     Route: 065
  393. AMOXICILLIN TRIHYDRATE [Suspect]
     Active Substance: AMOXICILLIN
     Route: 065
  394. AMOXICILLIN TRIHYDRATE [Suspect]
     Active Substance: AMOXICILLIN
     Dosage: AMOXICILLIN
     Route: 065
  395. AMOXICILLIN TRIHYDRATE [Suspect]
     Active Substance: AMOXICILLIN
     Dosage: AMOXICILLIN
     Route: 065
  396. AMOXICILLIN TRIHYDRATE [Suspect]
     Active Substance: AMOXICILLIN
     Dosage: AMOXICILLIN
     Route: 065
  397. AMOXICILLIN TRIHYDRATE [Suspect]
     Active Substance: AMOXICILLIN
     Route: 065
  398. AMOXICILLIN TRIHYDRATE [Suspect]
     Active Substance: AMOXICILLIN
     Route: 065
  399. AMOXICILLIN TRIHYDRATE [Suspect]
     Active Substance: AMOXICILLIN
     Dosage: AMOXICILLIN TRIHYDRATE
     Route: 065
  400. AMOXICILLIN TRIHYDRATE [Suspect]
     Active Substance: AMOXICILLIN
     Route: 065
  401. AMOXICILLIN TRIHYDRATE [Suspect]
     Active Substance: AMOXICILLIN
     Route: 065
  402. AMOXICILLIN TRIHYDRATE [Suspect]
     Active Substance: AMOXICILLIN
     Route: 065
  403. AMOXICILLIN TRIHYDRATE [Suspect]
     Active Substance: AMOXICILLIN
     Route: 065
  404. AMOXICILLIN TRIHYDRATE [Suspect]
     Active Substance: AMOXICILLIN
     Route: 065
  405. AMOXICILLIN TRIHYDRATE [Suspect]
     Active Substance: AMOXICILLIN
     Route: 065
  406. AMOXICILLIN TRIHYDRATE [Suspect]
     Active Substance: AMOXICILLIN
     Route: 065
  407. AMOXICILLIN TRIHYDRATE [Suspect]
     Active Substance: AMOXICILLIN
     Route: 065
  408. AMOXICILLIN TRIHYDRATE [Suspect]
     Active Substance: AMOXICILLIN
     Route: 065
  409. METOCLOPRAMIDE [Suspect]
     Active Substance: METOCLOPRAMIDE
     Indication: Migraine
     Route: 065
  410. METOCLOPRAMIDE [Suspect]
     Active Substance: METOCLOPRAMIDE
     Route: 065
  411. METOCLOPRAMIDE [Suspect]
     Active Substance: METOCLOPRAMIDE
     Route: 065
  412. METOCLOPRAMIDE [Suspect]
     Active Substance: METOCLOPRAMIDE
     Route: 065
  413. METOCLOPRAMIDE [Suspect]
     Active Substance: METOCLOPRAMIDE
     Route: 065
  414. METOCLOPRAMIDE [Suspect]
     Active Substance: METOCLOPRAMIDE
     Route: 065
  415. METOCLOPRAMIDE [Suspect]
     Active Substance: METOCLOPRAMIDE
     Route: 065
  416. METOCLOPRAMIDE [Suspect]
     Active Substance: METOCLOPRAMIDE
     Route: 065
  417. METOCLOPRAMIDE [Suspect]
     Active Substance: METOCLOPRAMIDE
     Route: 065
  418. METOCLOPRAMIDE [Suspect]
     Active Substance: METOCLOPRAMIDE
     Route: 065
  419. TRAMADOL HYDROCHLORIDE [Suspect]
     Active Substance: TRAMADOL HYDROCHLORIDE
     Indication: Product used for unknown indication
     Route: 065
  420. TRAMADOL HYDROCHLORIDE [Suspect]
     Active Substance: TRAMADOL HYDROCHLORIDE
     Route: 048
  421. ZOLMITRIPTAN [Suspect]
     Active Substance: ZOLMITRIPTAN
     Indication: Migraine
     Route: 065
  422. ZOLMITRIPTAN [Suspect]
     Active Substance: ZOLMITRIPTAN
     Indication: Product used for unknown indication
     Route: 065
  423. ZOLMITRIPTAN [Suspect]
     Active Substance: ZOLMITRIPTAN
     Route: 065
  424. ZOLMITRIPTAN [Suspect]
     Active Substance: ZOLMITRIPTAN
     Route: 065
  425. ZOLMITRIPTAN [Suspect]
     Active Substance: ZOLMITRIPTAN
     Route: 065
  426. ZOLMITRIPTAN [Suspect]
     Active Substance: ZOLMITRIPTAN
     Route: 065
  427. ZOLMITRIPTAN [Suspect]
     Active Substance: ZOLMITRIPTAN
     Route: 048
  428. ZOLMITRIPTAN [Suspect]
     Active Substance: ZOLMITRIPTAN
     Route: 065
  429. ALBUTEROL [Suspect]
     Active Substance: ALBUTEROL
     Indication: Product used for unknown indication
     Dosage: SALBUTAMOL
     Route: 065
  430. ALBUTEROL [Suspect]
     Active Substance: ALBUTEROL
     Dosage: SALBUTAMOL SULFATE
     Route: 065
  431. ALBUTEROL [Suspect]
     Active Substance: ALBUTEROL
     Dosage: SALBUTAMOL
     Route: 065
  432. ALBUTEROL [Suspect]
     Active Substance: ALBUTEROL
     Dosage: SALBUTAMOL HFA, METERED-DOSE (AEROSOL)
     Route: 065
  433. ALBUTEROL [Suspect]
     Active Substance: ALBUTEROL
     Dosage: SALBUTAMOL SULFATE
     Route: 065
  434. ALBUTEROL [Suspect]
     Active Substance: ALBUTEROL
     Dosage: SALBUTAMOL HFA, METERED-DOSE (AEROSOL)
     Route: 065
  435. ALBUTEROL [Suspect]
     Active Substance: ALBUTEROL
     Dosage: SALBUTAMOL
     Route: 065
  436. ALBUTEROL [Suspect]
     Active Substance: ALBUTEROL
     Route: 065
  437. ALBUTEROL [Suspect]
     Active Substance: ALBUTEROL
     Dosage: SALBUTAMOL
     Route: 065
  438. ALBUTEROL [Suspect]
     Active Substance: ALBUTEROL
     Dosage: SALBUTAMOL
     Route: 065
  439. ALBUTEROL [Suspect]
     Active Substance: ALBUTEROL
     Dosage: SALBUTAMOL
     Route: 065
  440. ALBUTEROL [Suspect]
     Active Substance: ALBUTEROL
     Route: 065
  441. ALBUTEROL [Suspect]
     Active Substance: ALBUTEROL
     Route: 065
  442. ALBUTEROL [Suspect]
     Active Substance: ALBUTEROL
     Dosage: SALBUTAMOL
     Route: 065
  443. ALBUTEROL [Suspect]
     Active Substance: ALBUTEROL
     Route: 065
  444. VENLAFAXINE HYDROCHLORIDE [Suspect]
     Active Substance: VENLAFAXINE HYDROCHLORIDE
     Indication: Migraine
     Route: 065
  445. VENLAFAXINE HYDROCHLORIDE [Suspect]
     Active Substance: VENLAFAXINE HYDROCHLORIDE
     Route: 065
  446. VENLAFAXINE HYDROCHLORIDE [Suspect]
     Active Substance: VENLAFAXINE HYDROCHLORIDE
     Route: 065
  447. VENLAFAXINE HYDROCHLORIDE [Suspect]
     Active Substance: VENLAFAXINE HYDROCHLORIDE
     Route: 065
  448. VENLAFAXINE HYDROCHLORIDE [Suspect]
     Active Substance: VENLAFAXINE HYDROCHLORIDE
     Route: 065
  449. VENLAFAXINE HYDROCHLORIDE [Suspect]
     Active Substance: VENLAFAXINE HYDROCHLORIDE
     Route: 065
  450. VENLAFAXINE HYDROCHLORIDE [Suspect]
     Active Substance: VENLAFAXINE HYDROCHLORIDE
     Route: 065
  451. VENLAFAXINE HYDROCHLORIDE [Suspect]
     Active Substance: VENLAFAXINE HYDROCHLORIDE
     Route: 065
  452. DEXAMETHASONE PHOSPHATE [Suspect]
     Active Substance: DEXAMETHASONE PHOSPHATE
     Indication: Migraine
     Dosage: DEXAMETHASONE SODIUM PHOSPHATE
     Route: 065
  453. DEXAMETHASONE PHOSPHATE [Suspect]
     Active Substance: DEXAMETHASONE PHOSPHATE
     Route: 048
  454. DEXAMETHASONE PHOSPHATE [Suspect]
     Active Substance: DEXAMETHASONE PHOSPHATE
     Route: 065
  455. DEXAMETHASONE PHOSPHATE [Suspect]
     Active Substance: DEXAMETHASONE PHOSPHATE
     Route: 065
  456. ALBUTEROL [Suspect]
     Active Substance: ALBUTEROL
     Indication: Product used for unknown indication
     Route: 065
  457. ALBUTEROL [Suspect]
     Active Substance: ALBUTEROL
     Route: 065
  458. DEXAMETHASONE [Suspect]
     Active Substance: DEXAMETHASONE
     Indication: Migraine
     Dosage: ORAL LIQUID
     Route: 065
  459. DEXAMETHASONE [Suspect]
     Active Substance: DEXAMETHASONE
     Route: 048
  460. DEXAMETHASONE [Suspect]
     Active Substance: DEXAMETHASONE
     Route: 065
  461. DEXAMETHASONE [Suspect]
     Active Substance: DEXAMETHASONE
     Route: 065
  462. DEXAMETHASONE [Suspect]
     Active Substance: DEXAMETHASONE
     Route: 065
  463. DEXAMETHASONE [Suspect]
     Active Substance: DEXAMETHASONE
     Route: 065
  464. DEXAMETHASONE [Suspect]
     Active Substance: DEXAMETHASONE
     Route: 065
  465. DEXAMETHASONE [Suspect]
     Active Substance: DEXAMETHASONE
     Route: 065
  466. RABEPRAZOLE SODIUM [Suspect]
     Active Substance: RABEPRAZOLE SODIUM
     Indication: Migraine
     Route: 065
  467. LISINOPRIL [Suspect]
     Active Substance: LISINOPRIL
     Indication: Product used for unknown indication
     Route: 065
  468. ACETAMINOPHEN\BUTYLSCOPOLAMINE BROMIDE [Suspect]
     Active Substance: ACETAMINOPHEN\BUTYLSCOPOLAMINE BROMIDE
     Indication: Migraine
     Route: 065
  469. ACETAMINOPHEN\BUTYLSCOPOLAMINE BROMIDE [Suspect]
     Active Substance: ACETAMINOPHEN\BUTYLSCOPOLAMINE BROMIDE
     Indication: Product used for unknown indication
     Route: 065
  470. CLOTRIMAZOLE\FLUCONAZOLE [Suspect]
     Active Substance: CLOTRIMAZOLE\FLUCONAZOLE
     Indication: Product used for unknown indication
     Route: 065
  471. CLOTRIMAZOLE\FLUCONAZOLE [Suspect]
     Active Substance: CLOTRIMAZOLE\FLUCONAZOLE
     Route: 065
  472. CLOTRIMAZOLE\FLUCONAZOLE [Suspect]
     Active Substance: CLOTRIMAZOLE\FLUCONAZOLE
     Route: 065
  473. CLOTRIMAZOLE\FLUCONAZOLE [Suspect]
     Active Substance: CLOTRIMAZOLE\FLUCONAZOLE
     Route: 065
  474. ESOMEPRAZOLE [Suspect]
     Active Substance: ESOMEPRAZOLE
     Indication: Migraine
     Route: 065
  475. ESOMEPRAZOLE [Suspect]
     Active Substance: ESOMEPRAZOLE
     Route: 065
  476. ESOMEPRAZOLE [Suspect]
     Active Substance: ESOMEPRAZOLE
     Route: 065
  477. ESOMEPRAZOLE [Suspect]
     Active Substance: ESOMEPRAZOLE
     Route: 048
  478. METRONIDAZOLE [Suspect]
     Active Substance: METRONIDAZOLE
     Indication: Product used for unknown indication
     Route: 065
  479. ACETAMINOPHEN\DIPHENHYDRAMINE HYDROCHLORIDE [Suspect]
     Active Substance: ACETAMINOPHEN\DIPHENHYDRAMINE HYDROCHLORIDE
     Indication: Product used for unknown indication
     Route: 065
  480. CLOTRIMAZOLE [Suspect]
     Active Substance: CLOTRIMAZOLE
     Indication: Product used for unknown indication
     Route: 065
  481. MAXALT [Suspect]
     Active Substance: RIZATRIPTAN BENZOATE
     Indication: Product used for unknown indication
     Route: 065
  482. MAXALT [Suspect]
     Active Substance: RIZATRIPTAN BENZOATE
     Route: 065
  483. MAXALT [Suspect]
     Active Substance: RIZATRIPTAN BENZOATE
     Route: 065
  484. SCOPOLAMINE HYDROBROMIDE [Suspect]
     Active Substance: SCOPOLAMINE HYDROBROMIDE
     Indication: Product used for unknown indication
     Route: 065
  485. SCOPOLAMINE HYDROBROMIDE [Suspect]
     Active Substance: SCOPOLAMINE HYDROBROMIDE
     Route: 065
  486. SCOPOLAMINE HYDROBROMIDE [Suspect]
     Active Substance: SCOPOLAMINE HYDROBROMIDE
     Route: 065
  487. SCOPOLAMINE HYDROBROMIDE [Suspect]
     Active Substance: SCOPOLAMINE HYDROBROMIDE
     Route: 065
  488. CYMBALTA [Suspect]
     Active Substance: DULOXETINE HYDROCHLORIDE
     Indication: Product used for unknown indication
     Route: 065
  489. CYMBALTA [Suspect]
     Active Substance: DULOXETINE HYDROCHLORIDE
     Route: 065
  490. CYMBALTA [Suspect]
     Active Substance: DULOXETINE HYDROCHLORIDE
     Route: 065
  491. CYMBALTA [Suspect]
     Active Substance: DULOXETINE HYDROCHLORIDE
     Route: 065
  492. CYMBALTA [Suspect]
     Active Substance: DULOXETINE HYDROCHLORIDE
     Route: 065
  493. CYMBALTA [Suspect]
     Active Substance: DULOXETINE HYDROCHLORIDE
     Route: 065
  494. CYMBALTA [Suspect]
     Active Substance: DULOXETINE HYDROCHLORIDE
     Route: 065
  495. CYMBALTA [Suspect]
     Active Substance: DULOXETINE HYDROCHLORIDE
     Route: 065
  496. CYMBALTA [Suspect]
     Active Substance: DULOXETINE HYDROCHLORIDE
     Route: 065
  497. CYMBALTA [Suspect]
     Active Substance: DULOXETINE HYDROCHLORIDE
     Route: 065
  498. CYMBALTA [Suspect]
     Active Substance: DULOXETINE HYDROCHLORIDE
     Route: 065
  499. CYMBALTA [Suspect]
     Active Substance: DULOXETINE HYDROCHLORIDE
     Route: 065
  500. CYMBALTA [Suspect]
     Active Substance: DULOXETINE HYDROCHLORIDE
     Route: 065
  501. CYMBALTA [Suspect]
     Active Substance: DULOXETINE HYDROCHLORIDE
     Route: 065
  502. CYMBALTA [Suspect]
     Active Substance: DULOXETINE HYDROCHLORIDE
     Route: 065
  503. CYMBALTA [Suspect]
     Active Substance: DULOXETINE HYDROCHLORIDE
     Route: 065
  504. CYMBALTA [Suspect]
     Active Substance: DULOXETINE HYDROCHLORIDE
     Route: 065
  505. CYMBALTA [Suspect]
     Active Substance: DULOXETINE HYDROCHLORIDE
     Dosage: 1 DOSAGE FORMS,1 IN 1 D
     Route: 065
  506. CYMBALTA [Suspect]
     Active Substance: DULOXETINE HYDROCHLORIDE
     Route: 065
  507. CYMBALTA [Suspect]
     Active Substance: DULOXETINE HYDROCHLORIDE
     Route: 065
  508. LISINOPRIL [Suspect]
     Active Substance: LISINOPRIL
     Indication: Product used for unknown indication
     Route: 065
  509. LISINOPRIL [Suspect]
     Active Substance: LISINOPRIL
     Route: 065
  510. LISINOPRIL [Suspect]
     Active Substance: LISINOPRIL
     Route: 065
  511. LISINOPRIL [Suspect]
     Active Substance: LISINOPRIL
     Route: 065
  512. LISINOPRIL [Suspect]
     Active Substance: LISINOPRIL
     Route: 065
  513. LISINOPRIL [Suspect]
     Active Substance: LISINOPRIL
     Route: 065
  514. LISINOPRIL [Suspect]
     Active Substance: LISINOPRIL
     Route: 065
  515. SCOPOLAMINE [Suspect]
     Active Substance: SCOPOLAMINE
     Indication: Migraine
     Route: 065
  516. SCOPOLAMINE [Suspect]
     Active Substance: SCOPOLAMINE
     Route: 065
  517. SCOPOLAMINE [Suspect]
     Active Substance: SCOPOLAMINE
     Route: 065
  518. SCOPOLAMINE [Suspect]
     Active Substance: SCOPOLAMINE
     Route: 065
  519. SCOPOLAMINE [Suspect]
     Active Substance: SCOPOLAMINE
     Route: 065
  520. SCOPOLAMINE [Suspect]
     Active Substance: SCOPOLAMINE
     Dosage: HYOSCINE BUTYLBROMIDE
     Route: 065
  521. SCOPOLAMINE [Suspect]
     Active Substance: SCOPOLAMINE
     Dosage: HYOSCINE BUTYLBROMIDE
     Route: 065
  522. SCOPOLAMINE [Suspect]
     Active Substance: SCOPOLAMINE
     Route: 065
  523. SCOPOLAMINE [Suspect]
     Active Substance: SCOPOLAMINE
     Route: 065
  524. SCOPOLAMINE [Suspect]
     Active Substance: SCOPOLAMINE
     Dosage: HYOSCINE BUTYLBROMIDE
     Route: 065
  525. AZITHROMYCIN ANHYDROUS [Suspect]
     Active Substance: AZITHROMYCIN ANHYDROUS
     Indication: Migraine
     Route: 065
  526. AZITHROMYCIN ANHYDROUS [Suspect]
     Active Substance: AZITHROMYCIN ANHYDROUS
     Route: 065
  527. AZITHROMYCIN ANHYDROUS [Suspect]
     Active Substance: AZITHROMYCIN ANHYDROUS
     Route: 065
  528. AZITHROMYCIN ANHYDROUS [Suspect]
     Active Substance: AZITHROMYCIN ANHYDROUS
     Route: 065
  529. AZITHROMYCIN ANHYDROUS [Suspect]
     Active Substance: AZITHROMYCIN ANHYDROUS
     Route: 065
  530. AZITHROMYCIN ANHYDROUS [Suspect]
     Active Substance: AZITHROMYCIN ANHYDROUS
     Route: 065
  531. AZITHROMYCIN ANHYDROUS [Suspect]
     Active Substance: AZITHROMYCIN ANHYDROUS
     Route: 065
  532. AZITHROMYCIN ANHYDROUS [Suspect]
     Active Substance: AZITHROMYCIN ANHYDROUS
     Route: 065
  533. DULOXETINE [Suspect]
     Active Substance: DULOXETINE
     Indication: Migraine
     Route: 065
  534. DULOXETINE [Suspect]
     Active Substance: DULOXETINE
     Route: 065
  535. PREDNISONE [Suspect]
     Active Substance: PREDNISONE
     Indication: Product used for unknown indication
     Route: 065
  536. PREDNISONE [Suspect]
     Active Substance: PREDNISONE
     Route: 065
  537. ACETAMINOPHEN\TRAMADOL HYDROCHLORIDE [Suspect]
     Active Substance: ACETAMINOPHEN\TRAMADOL HYDROCHLORIDE
     Indication: Product used for unknown indication
     Route: 065
  538. ACETAMINOPHEN\CODEINE PHOSPHATE [Suspect]
     Active Substance: ACETAMINOPHEN\CODEINE PHOSPHATE
     Indication: Product used for unknown indication
     Route: 065
  539. POLYETHYLENE GLYCOLS [Suspect]
     Active Substance: POLYETHYLENE GLYCOLS
     Indication: Product used for unknown indication
     Route: 065
  540. POLYETHYLENE GLYCOLS [Suspect]
     Active Substance: POLYETHYLENE GLYCOLS
     Route: 065
  541. ACETAMINOPHEN\BUTALBITAL\CAFFEINE\CODEINE PHOSPHATE [Suspect]
     Active Substance: ACETAMINOPHEN\BUTALBITAL\CAFFEINE\CODEINE PHOSPHATE
     Indication: Product used for unknown indication
     Route: 065
  542. ALBUTEROL [Suspect]
     Active Substance: ALBUTEROL
     Indication: Product used for unknown indication
     Route: 065
  543. CLOTRIMAZOLE\FLUCONAZOLE [Suspect]
     Active Substance: CLOTRIMAZOLE\FLUCONAZOLE
     Indication: Product used for unknown indication
     Route: 065
  544. CIPRO [Suspect]
     Active Substance: CIPROFLOXACIN HYDROCHLORIDE
     Indication: Product used for unknown indication
     Route: 065
  545. DEXAMETHASONE [Suspect]
     Active Substance: DEXAMETHASONE
     Indication: Migraine
     Route: 065
  546. DEXAMETHASONE [Suspect]
     Active Substance: DEXAMETHASONE
     Route: 065
  547. DEXAMETHASONE [Suspect]
     Active Substance: DEXAMETHASONE
     Route: 065
  548. DEXAMETHASONE [Suspect]
     Active Substance: DEXAMETHASONE
     Route: 065
  549. DEXAMETHASONE [Suspect]
     Active Substance: DEXAMETHASONE
     Route: 065
  550. TOPAMAX [Suspect]
     Active Substance: TOPIRAMATE
     Indication: Migraine
     Route: 065
  551. SULFAMETHOXAZOLE\TRIMETHOPRIM [Suspect]
     Active Substance: SULFAMETHOXAZOLE\TRIMETHOPRIM
     Indication: Product used for unknown indication
     Route: 065
  552. SULFAMETHOXAZOLE\TRIMETHOPRIM [Suspect]
     Active Substance: SULFAMETHOXAZOLE\TRIMETHOPRIM
     Route: 065
  553. SULFAMETHOXAZOLE\TRIMETHOPRIM [Suspect]
     Active Substance: SULFAMETHOXAZOLE\TRIMETHOPRIM
     Dosage: NOT SPECIFIED
     Route: 065
  554. SULFAMETHOXAZOLE\TRIMETHOPRIM [Suspect]
     Active Substance: SULFAMETHOXAZOLE\TRIMETHOPRIM
     Route: 065
  555. NEXIUM [Suspect]
     Active Substance: ESOMEPRAZOLE MAGNESIUM
     Indication: Migraine
     Route: 065
  556. ASPIRIN\CAFFEINE\CODEINE [Suspect]
     Active Substance: ASPIRIN\CAFFEINE\CODEINE
     Indication: Migraine
     Route: 065
  557. ERENUMAB-AOOE [Suspect]
     Active Substance: ERENUMAB-AOOE
     Indication: Migraine
     Route: 065
  558. DEXAMETHASONE SODIUM PHOSPHATE [Suspect]
     Active Substance: DEXAMETHASONE SODIUM PHOSPHATE
     Indication: Migraine
     Route: 065
  559. DEXAMETHASONE SODIUM PHOSPHATE [Suspect]
     Active Substance: DEXAMETHASONE SODIUM PHOSPHATE
     Route: 065
  560. DEXAMETHASONE SODIUM PHOSPHATE [Suspect]
     Active Substance: DEXAMETHASONE SODIUM PHOSPHATE
     Route: 048
  561. DEXAMETHASONE SODIUM PHOSPHATE [Suspect]
     Active Substance: DEXAMETHASONE SODIUM PHOSPHATE
     Route: 048
  562. DEXAMETHASONE SODIUM PHOSPHATE [Suspect]
     Active Substance: DEXAMETHASONE SODIUM PHOSPHATE
     Route: 048
  563. VENLAFAXINE HYDROCHLORIDE [Suspect]
     Active Substance: VENLAFAXINE HYDROCHLORIDE
     Indication: Product used for unknown indication
     Route: 065
  564. VENLAFAXINE HYDROCHLORIDE [Suspect]
     Active Substance: VENLAFAXINE HYDROCHLORIDE
     Route: 065
  565. AZITHROMYCIN [Suspect]
     Active Substance: AZITHROMYCIN
     Indication: Product used for unknown indication
     Route: 065
  566. AZITHROMYCIN [Suspect]
     Active Substance: AZITHROMYCIN
     Route: 065
  567. AZITHROMYCIN [Suspect]
     Active Substance: AZITHROMYCIN
     Route: 065
  568. ESOMEPRAZOLE MAGNESIUM [Suspect]
     Active Substance: ESOMEPRAZOLE MAGNESIUM
     Indication: Product used for unknown indication
     Route: 065
  569. ESOMEPRAZOLE MAGNESIUM [Suspect]
     Active Substance: ESOMEPRAZOLE MAGNESIUM
     Route: 065
  570. LANSOPRAZOLE [Suspect]
     Active Substance: LANSOPRAZOLE
     Indication: Migraine
     Route: 065
  571. RABEPRAZOLE [Suspect]
     Active Substance: RABEPRAZOLE
     Indication: Migraine
     Route: 065
  572. RABEPRAZOLE [Suspect]
     Active Substance: RABEPRAZOLE
     Route: 065
  573. RABEPRAZOLE [Suspect]
     Active Substance: RABEPRAZOLE
     Route: 065
  574. RABEPRAZOLE [Suspect]
     Active Substance: RABEPRAZOLE
     Route: 065
  575. MOMETASONE FUROATE [Suspect]
     Active Substance: MOMETASONE FUROATE
     Indication: Migraine
     Route: 065
  576. MOMETASONE FUROATE [Suspect]
     Active Substance: MOMETASONE FUROATE
     Route: 065
  577. MOMETASONE FUROATE [Suspect]
     Active Substance: MOMETASONE FUROATE
     Route: 065
  578. MOMETASONE FUROATE [Concomitant]
     Active Substance: MOMETASONE FUROATE
     Indication: Product used for unknown indication
  579. ACETAMINOPHEN\CAFFEINE\DIHYDROCODEINE BITARTRATE [Concomitant]
     Active Substance: ACETAMINOPHEN\CAFFEINE\DIHYDROCODEINE BITARTRATE
     Indication: Product used for unknown indication
  580. ALOE VERA;CALCIUM PHOSPHATE DIBASIC;FERROUS FUMARATE;MAGNESIUM OXIDE [Concomitant]
     Indication: Product used for unknown indication
  581. FLUOXETINE HYDROCHLORIDE [Concomitant]
     Active Substance: FLUOXETINE HYDROCHLORIDE
     Indication: Product used for unknown indication
  582. FLUTICASONE PROPIONATE [Concomitant]
     Active Substance: FLUTICASONE PROPIONATE
     Indication: Product used for unknown indication
  583. FROVATRIPTAN SUCCINATE [Concomitant]
     Active Substance: FROVATRIPTAN SUCCINATE
     Indication: Product used for unknown indication

REACTIONS (11)
  - Drug intolerance [Recovered/Resolved]
  - Headache [Recovered/Resolved]
  - Angioedema [Recovered/Resolved]
  - Dysphonia [Recovered/Resolved]
  - Hypersensitivity [Recovered/Resolved]
  - Swelling face [Recovered/Resolved]
  - Swollen tongue [Recovered/Resolved]
  - Drug ineffective [Unknown]
  - Drug ineffective for unapproved indication [Unknown]
  - Product use in unapproved indication [Unknown]
  - Off label use [Unknown]
